FAERS Safety Report 18846503 (Version 1)
Quarter: 2021Q1

REPORT INFORMATION
  Report Type: Report from Study
  Country: US (occurrence: US)
  Receive Date: 20210203
  Receipt Date: 20210203
  Transmission Date: 20210419
  Serious: No
  Sender: FDA-Public Use
  Company Number: US-EXELIXIS-CABO-20029932

PATIENT
  Sex: Female

DRUGS (1)
  1. CABOMETYX [Suspect]
     Active Substance: CABOZANTINIB S-MALATE
     Indication: RENAL CANCER
     Dosage: 20 MG
     Route: 048

REACTIONS (9)
  - Nausea [Unknown]
  - Constipation [Unknown]
  - Hypertension [Unknown]
  - Oral pain [Unknown]
  - Taste disorder [Unknown]
  - Fatigue [Unknown]
  - Drug ineffective [Unknown]
  - Abdominal discomfort [Unknown]
  - Alopecia [Unknown]
